FAERS Safety Report 8216431 (Version 3)
Quarter: 2012Q4

REPORT INFORMATION
  Report Type: Report from Study
  Country: AR (occurrence: AR)
  Receive Date: 20111031
  Receipt Date: 20120911
  Transmission Date: 20130627
  Serious: Yes (Death, Hospitalization, Other)
  Sender: FDA-Public Use
  Company Number: PHHO2011AR04046

PATIENT
  Age: 56 Year
  Sex: Female
  Weight: 59 kg

DRUGS (5)
  1. FLUTICASONE [Suspect]
     Dosage: 100 mg, QD
     Route: 048
     Dates: start: 20100915, end: 20110424
  2. SALBUTAMOL [Suspect]
     Dosage: UNK
     Dates: start: 20100915, end: 20110424
  3. TIOTROPIUM [Suspect]
     Indication: CHRONIC OBSTRUCTIVE PULMONARY DISEASE
     Dosage: 18 ug, QD
     Dates: start: 20101006
  4. FUROSEMIDE [Concomitant]
     Indication: OEDEMA PERIPHERAL
     Dosage: 40 mg, QD
     Dates: start: 20100712, end: 20110222
  5. ESPIRONOLACTONA [Concomitant]
     Indication: OEDEMA PERIPHERAL
     Dosage: 25 mg, QD
     Dates: start: 20100712

REACTIONS (4)
  - Cardio-respiratory arrest [Fatal]
  - Pancreatic neoplasm [Recovered/Resolved]
  - Bile duct obstruction [Recovered/Resolved]
  - Concomitant disease progression [Recovered/Resolved]
